FAERS Safety Report 8690779 (Version 3)
Quarter: 2013Q4

REPORT INFORMATION
  Report Type: Spontaneous
  Country: US (occurrence: US)
  Receive Date: 20120728
  Receipt Date: 20131101
  Transmission Date: 20140711
  Serious: No
  Sender: FDA-Public Use
  Company Number: US-009507513-2012SP036519

PATIENT
  Sex: Female

DRUGS (2)
  1. CLARITIN [Suspect]
     Indication: HYPERSENSITIVITY
     Dosage: UNK UNK, UNKNOWN
     Route: 048
     Dates: start: 20120530, end: 20120620
  2. CLARITIN [Suspect]
     Indication: MEDICAL OBSERVATION
     Dosage: UNK UNK, UNKNOWN
     Route: 048

REACTIONS (1)
  - Therapeutic product ineffective [Unknown]
